FAERS Safety Report 10606192 (Version 2)
Quarter: 2014Q4

REPORT INFORMATION
  Report Type: Spontaneous
  Country: US (occurrence: None)
  Receive Date: 20141121
  Receipt Date: 20141222
  Transmission Date: 20150529
  Serious: Yes (Hospitalization)
  Sender: FDA-Public Use
  Company Number: 14-Z-US-00329

PATIENT
  Age: 68 Year
  Sex: Female
  Weight: 50.7 kg

DRUGS (18)
  1. ZEVALIN [Suspect]
     Active Substance: IBRITUMOMAB TIUXETAN
     Indication: DIFFUSE LARGE B-CELL LYMPHOMA
     Dosage: 04 MCI, SINGLE, INTRAVENOUS
     Route: 042
     Dates: start: 20140708, end: 20140708
  2. VANCOCMYIN(VACOMYCIN) [Concomitant]
  3. CYCLOSPORINE(CICLOSPORIN) [Concomitant]
  4. AMLODIPINE [Concomitant]
     Active Substance: AMLODIPINE BESYLATE
  5. AZTREONAM(AZTREONAM) [Concomitant]
  6. ACYCLOVIR/00587301(ACICLOVIR) [Concomitant]
  7. POTASSIUM CHLORIDE(POTASSIUM CHLORIDE) [Concomitant]
  8. RITUXIMAB [Suspect]
     Active Substance: RITUXIMAB
     Indication: DIFFUSE LARGE B-CELL LYMPHOMA
     Dosage: 250 MG/M2, SINGLE INTRAVENOUS
     Route: 042
     Dates: start: 20140708, end: 20140708
  9. SENNA/00142202/(SENNA ALEXANDRINA) [Concomitant]
  10. CALCIUM CITRATE(CALCIUM CITRATE) [Concomitant]
  11. CHOLECALCIFEROL(COLECALCIFEROL) [Concomitant]
  12. ONDANSETRON(ONDANSETRON) [Concomitant]
  13. ACETAMINOPHEN(PARACETAMOL) [Concomitant]
  14. LORAZEPAM(LORAZEPAM) [Concomitant]
     Active Substance: LORAZEPAM
  15. HYDROXYCHLOROQUINE(HYDROXYCHLOROQUINE) [Concomitant]
  16. FUROSEMIDE(FUROSEMIDE) [Concomitant]
  17. ESTRADIOL(ESTRADIOL) [Concomitant]
  18. OXYCODONE(OXYCODONE) [Concomitant]
     Active Substance: OXYCODONE

REACTIONS (8)
  - Hypotension [None]
  - Anaemia [None]
  - Infection [None]
  - Thrombocytopenia [None]
  - Hypocalcaemia [None]
  - Hypophosphataemia [None]
  - Nausea [None]
  - Hyponatraemia [None]

NARRATIVE: CASE EVENT DATE: 20141103
